FAERS Safety Report 23442129 (Version 1)
Quarter: 2024Q1

REPORT INFORMATION
  Report Type: Spontaneous
  Country: JP (occurrence: JP)
  Receive Date: 20240125
  Receipt Date: 20240125
  Transmission Date: 20240410
  Serious: Yes (Other)
  Sender: FDA-Public Use
  Company Number: JP-Nexus Pharma-000248

PATIENT
  Age: 60 Year
  Sex: Female

DRUGS (1)
  1. ISOPROTERENOL HYDROCHLORIDE [Suspect]
     Active Substance: ISOPROTERENOL HYDROCHLORIDE
     Indication: Product used for unknown indication
     Dosage: 0.01 UG/G/KG/MIN

REACTIONS (3)
  - Hypersensitivity [Recovered/Resolved]
  - Heart rate increased [Recovered/Resolved]
  - Reduced parasympathetic activity [Recovered/Resolved]
